FAERS Safety Report 9457533 (Version 2)
Quarter: 2013Q4

REPORT INFORMATION
  Report Type: Spontaneous
  Country: IT (occurrence: IT)
  Receive Date: 20130814
  Receipt Date: 20131029
  Transmission Date: 20140711
  Serious: Yes (Other)
  Sender: FDA-Public Use
  Company Number: IT-RANBAXY-2013R1-72233

PATIENT
  Age: 5 Year
  Sex: Male

DRUGS (2)
  1. AMOXICILLIN/CLAVULANIC ACID [Suspect]
     Indication: BRONCHITIS
     Dosage: 40.5ML, COMPLETE
     Route: 048
     Dates: start: 20130516, end: 20130519
  2. CETIRIZINE DIHYDROCHLORIDE [Concomitant]
     Indication: RHINITIS ALLERGIC
     Dosage: UNK
     Route: 065

REACTIONS (2)
  - Angioedema [Recovering/Resolving]
  - Urticaria [Recovering/Resolving]
